FAERS Safety Report 15144447 (Version 2)
Quarter: 2018Q4

REPORT INFORMATION
  Report Type: Spontaneous
  Country: US (occurrence: US)
  Receive Date: 20180713
  Receipt Date: 20181011
  Transmission Date: 20190204
  Serious: No
  Sender: FDA-Public Use
  Company Number: US-NOVOPROD-600786

PATIENT
  Age: 64 Year
  Sex: Male
  Weight: 79.4 kg

DRUGS (1)
  1. FIASP [Suspect]
     Active Substance: INSULIN ASPART
     Indication: TYPE 1 DIABETES MELLITUS
     Dosage: BASAL RATE 11 U QD; TOTAL DAILY BOLUS 21 U QD
     Route: 058
     Dates: start: 20180302, end: 20180509

REACTIONS (4)
  - Hyperglycaemia [Recovered/Resolved]
  - Malabsorption from application site [Unknown]
  - Infusion site erythema [Recovered/Resolved]
  - Wrong technique in product usage process [Recovered/Resolved]

NARRATIVE: CASE EVENT DATE: 2018
